FAERS Safety Report 6518214-3 (Version None)
Quarter: 2009Q4

REPORT INFORMATION
  Report Type: 
  Country: None (occurrence: None)
  Receive Date: 20091218
  Receipt Date: 20091218
  Transmission Date: 20100525
  Serious: No
  Sender: FDA-Public Use
  Company Number: None

PATIENT
  Age: 45 Year
  Sex: Female
  Weight: 77.1115 kg

DRUGS (4)
  1. COLD REMEDY CHEWABLES [Suspect]
     Indication: NASOPHARYNGITIS
     Dosage: QID
     Dates: start: 20091130, end: 20091201
  2. LORAZEPAM [Concomitant]
  3. AIRBORNE [Concomitant]
  4. FLOWER REMEDY [Concomitant]

REACTIONS (1)
  - AGEUSIA [None]
